FAERS Safety Report 17623369 (Version 2)
Quarter: 2020Q2

REPORT INFORMATION
  Report Type: Spontaneous
  Country: DE (occurrence: DE)
  Receive Date: 20200403
  Receipt Date: 20200409
  Transmission Date: 20200713
  Serious: Yes (Other)
  Sender: FDA-Public Use
  Company Number: DE-ASTRAZENECA-2020SE45936

PATIENT
  Sex: Female

DRUGS (4)
  1. NOVOPULMON [Concomitant]
     Active Substance: BUDESONIDE
  2. SYMBICORT [Suspect]
     Active Substance: BUDESONIDE\FORMOTEROL FUMARATE DIHYDRATE
     Indication: ASTHMA
     Dosage: HIGH DOSAGES UNKNOWN
     Route: 055
  3. PREDNISOLONE. [Concomitant]
     Active Substance: PREDNISOLONE
  4. VIANI [Concomitant]
     Active Substance: FLUTICASONE PROPIONATE\SALMETEROL XINAFOATE

REACTIONS (10)
  - Visual impairment [Unknown]
  - Paraesthesia [Unknown]
  - Insomnia [Recovering/Resolving]
  - Restlessness [Unknown]
  - Hypertension [Unknown]
  - Muscle tightness [Unknown]
  - Headache [Unknown]
  - Asthma [Unknown]
  - Disturbance in attention [Unknown]
  - Muscle spasms [Unknown]
